FAERS Safety Report 10607441 (Version 2)
Quarter: 2014Q4

REPORT INFORMATION
  Report Type: Spontaneous
  Country: US (occurrence: US)
  Receive Date: 20141125
  Receipt Date: 20141125
  Transmission Date: 20150529
  Serious: No
  Sender: FDA-Public Use
  Company Number: US-ELI_LILLY_AND_COMPANY-US201406010095

PATIENT
  Sex: Female

DRUGS (5)
  1. ACCUPRIL [Concomitant]
     Active Substance: QUINAPRIL HYDROCHLORIDE
  2. VITAMIN D                          /00107901/ [Concomitant]
     Active Substance: ERGOCALCIFEROL
  3. KLONOPIN [Concomitant]
     Active Substance: CLONAZEPAM
  4. OMEGA 3                            /01334101/ [Concomitant]
     Active Substance: OMEGA-3 FATTY ACIDS
  5. INSULIN HUMAN [Suspect]
     Active Substance: INSULIN HUMAN
     Indication: TYPE 1 DIABETES MELLITUS
     Dosage: 60 U, QD
     Route: 058
     Dates: start: 2009

REACTIONS (10)
  - Hyperhidrosis [Unknown]
  - Hypothyroidism [Recovered/Resolved]
  - Wrong technique in drug usage process [Unknown]
  - Cow^s milk intolerance [Unknown]
  - Headache [Unknown]
  - Food intolerance [Unknown]
  - Peripheral swelling [Unknown]
  - Eye disorder [Unknown]
  - Coeliac disease [Unknown]
  - Hypoaesthesia [Unknown]

NARRATIVE: CASE EVENT DATE: 2013
